FAERS Safety Report 6185185-1 (Version None)
Quarter: 2009Q2

REPORT INFORMATION
  Report Type: 
  Country: None (occurrence: None)
  Receive Date: 20090507
  Receipt Date: 20090427
  Transmission Date: 20091009
  Serious: Yes (Other)
  Sender: FDA-Public Use
  Company Number: 2009AP001720

PATIENT
  Age: 79 Year
  Sex: Male

DRUGS (1)
  1. LISINOPRIL [Suspect]
     Dosage: 5 MG;QD

REACTIONS (5)
  - ANAPHYLACTIC REACTION [None]
  - DEVICE INTERACTION [None]
  - DIARRHOEA [None]
  - HAEMORRHOIDS [None]
  - RECTAL HAEMORRHAGE [None]
